FAERS Safety Report 9657228 (Version 1)
Quarter: 2013Q4

REPORT INFORMATION
  Report Type: Spontaneous
  Country: GB (occurrence: GB)
  Receive Date: 20131030
  Receipt Date: 20131030
  Transmission Date: 20140711
  Serious: Yes (Death)
  Sender: FDA-Public Use
  Company Number: GB-CELGENEUS-167-50794-13103585

PATIENT
  Age: 80 Year
  Sex: Female
  Weight: 63 kg

DRUGS (6)
  1. VIDAZA [Suspect]
     Indication: ACUTE MYELOID LEUKAEMIA
     Route: 058
     Dates: start: 20131014
  2. ONDANSETRON [Concomitant]
     Indication: NAUSEA
     Dosage: 16 MILLIGRAM
     Route: 065
     Dates: start: 20131014
  3. ACICLOVIR [Concomitant]
     Indication: PROPHYLAXIS
     Dosage: 800 MILLIGRAM
     Route: 065
  4. INTRACONAZOLE [Concomitant]
     Indication: PROPHYLAXIS
     Dosage: 400 MILLIGRAM
     Route: 065
  5. DIFFLAM M/W [Concomitant]
     Indication: PROPHYLAXIS
     Dosage: 10 MILLILITER
     Route: 065
  6. ALLOPURINOL [Concomitant]
     Indication: PRODUCT USED FOR UNKNOWN INDICATION
     Dosage: 300 MILLIGRAM
     Route: 065

REACTIONS (1)
  - Cerebral haemorrhage [Fatal]
